FAERS Safety Report 17229709 (Version 1)
Quarter: 2020Q1

REPORT INFORMATION
  Report Type: Spontaneous
  Country: US (occurrence: US)
  Receive Date: 20200103
  Receipt Date: 20200103
  Transmission Date: 20200409
  Serious: Yes (Other)
  Sender: FDA-Public Use
  Company Number: US-BAYER-2019-237311

PATIENT
  Age: 57 Year
  Sex: Female

DRUGS (2)
  1. MILK OF MAGNESIA CHERRY [Suspect]
     Active Substance: MAGNESIUM HYDROXIDE
     Indication: GASTROINTESTINAL DISORDER
     Dosage: UNK
     Route: 048
  2. MOTRIN [Concomitant]
     Active Substance: IBUPROFEN

REACTIONS (6)
  - Nausea [Unknown]
  - Drug ineffective [Unknown]
  - Product use issue [Unknown]
  - Myalgia [Unknown]
  - Drug dependence [Unknown]
  - Product use complaint [None]
